FAERS Safety Report 14325668 (Version 2)
Quarter: 2018Q1

REPORT INFORMATION
  Report Type: Spontaneous
  Country: US (occurrence: US)
  Receive Date: 20171226
  Receipt Date: 20180102
  Transmission Date: 20180509
  Serious: No
  Sender: FDA-Public Use
  Company Number: US-LUNDBECK-DKLU2041058

PATIENT
  Sex: Male

DRUGS (1)
  1. ONFI [Suspect]
     Active Substance: CLOBAZAM
     Indication: EPILEPSY
     Route: 048
     Dates: start: 20140523

REACTIONS (5)
  - Condition aggravated [Unknown]
  - Abnormal behaviour [Unknown]
  - Incontinence [Unknown]
  - Irritability [Unknown]
  - Skin irritation [Unknown]
